FAERS Safety Report 18049802 (Version 2)
Quarter: 2020Q3

REPORT INFORMATION
  Report Type: Spontaneous
  Country: JP (occurrence: JP)
  Receive Date: 20200721
  Receipt Date: 20200928
  Transmission Date: 20201103
  Serious: Yes (Hospitalization)
  Sender: FDA-Public Use
  Company Number: JP-NOVOPROD-741011

PATIENT
  Age: 56 Year
  Sex: Male
  Weight: 53.5 kg

DRUGS (4)
  1. NORDITROPIN [Suspect]
     Active Substance: SOMATROPIN
     Dosage: 0.1 MG, QD (RESUMED)
     Route: 058
     Dates: start: 20200730
  2. NORDITROPIN [Suspect]
     Active Substance: SOMATROPIN
     Dosage: 0.3 MG, QD
     Route: 058
     Dates: start: 20200422, end: 20200709
  3. NORDITROPIN [Suspect]
     Active Substance: SOMATROPIN
     Indication: GROWTH HORMONE DEFICIENCY
     Dosage: 0.1 MG, QD
     Route: 058
     Dates: start: 20200115
  4. CORTRIL [Concomitant]
     Active Substance: HYDROCORTISONE
     Indication: ADRENAL INSUFFICIENCY
     Dosage: (AT DOSES OF 10 MG, 0 MG AND 5 MG)
     Route: 048
     Dates: start: 20190606

REACTIONS (1)
  - Osteomyelitis [Recovering/Resolving]

NARRATIVE: CASE EVENT DATE: 202006
